FAERS Safety Report 4962303-1 (Version None)
Quarter: 2006Q2

REPORT INFORMATION
  Report Type: 
  Country: None (occurrence: None)
  Receive Date: 20060404
  Receipt Date: 20051229
  Transmission Date: 20061013
  Serious: No
  Sender: FDA-Public Use
  Company Number: US-BRISTOL-MYERS SQUIBB COMPANY-13232160

PATIENT
  Sex: Female
  Weight: 59 kg

DRUGS (10)
  1. HYDROXYUREA [Suspect]
     Indication: PLATELET COUNT INCREASED
     Dates: start: 20051001
  2. SYNTHROID [Concomitant]
  3. NEXIUM [Concomitant]
  4. TOPROL-XL [Concomitant]
  5. HYDROCHLOROTHIAZIDE [Concomitant]
  6. PAXIL [Concomitant]
  7. CALCIUM GLUCONATE [Concomitant]
  8. ASPIRIN [Concomitant]
  9. ASCORBIC ACID [Concomitant]
  10. MULTI-VITAMIN [Concomitant]

REACTIONS (4)
  - EUSTACHIAN TUBE DISORDER [None]
  - HYPOACUSIS [None]
  - MUCOSAL INFLAMMATION [None]
  - RASH [None]
